FAERS Safety Report 25570513 (Version 2)
Quarter: 2025Q3

REPORT INFORMATION
  Report Type: Spontaneous
  Country: JP (occurrence: JP)
  Receive Date: 20250717
  Receipt Date: 20250813
  Transmission Date: 20251020
  Serious: Yes (Hospitalization, Other)
  Sender: AMGEN
  Company Number: JP-BEH-2025212588

PATIENT
  Age: 23 Year
  Sex: Female

DRUGS (4)
  1. TAVNEOS [Suspect]
     Active Substance: AVACOPAN
     Indication: Microscopic polyangiitis
     Dosage: 60 MG, QD
     Route: 048
  2. PREDNISOLONE [Concomitant]
     Active Substance: PREDNISOLONE
     Route: 048
  3. RITUXIMAB [Concomitant]
     Active Substance: RITUXIMAB
     Route: 040
  4. RITUXIMAB [Concomitant]
     Active Substance: RITUXIMAB
     Route: 048

REACTIONS (3)
  - Rash [Recovered/Resolved]
  - Secondary syphilis [Recovered/Resolved]
  - Pyrexia [Recovered/Resolved]
